FAERS Safety Report 7093969-0 (Version None)
Quarter: 2010Q4

REPORT INFORMATION
  Report Type: 
  Country: None (occurrence: None)
  Receive Date: 20101110
  Receipt Date: 20101105
  Transmission Date: 20110411
  Serious: Yes (Death, Hospitalization, Other)
  Sender: FDA-Public Use
  Company Number: CR-ABBOTT-10P-039-0683866-00

PATIENT
  Age: 19 Year
  Sex: Female
  Weight: 40 kg

DRUGS (2)
  1. HUMIRA [Suspect]
     Indication: CROHN'S DISEASE
     Route: 058
     Dates: start: 20100318, end: 20101001
  2. MESALAMINE [Concomitant]
     Indication: INFLAMMATORY BOWEL DISEASE

REACTIONS (3)
  - FISTULA DISCHARGE [None]
  - PURULENT DISCHARGE [None]
  - SEPSIS [None]
